FAERS Safety Report 17239662 (Version 33)
Quarter: 2022Q4

REPORT INFORMATION
  Report Type: Spontaneous
  Country: CA (occurrence: CA)
  Receive Date: 20200106
  Receipt Date: 20221215
  Transmission Date: 20230113
  Serious: Yes (Other)
  Sender: FDA-Public Use
  Company Number: CA-CELLTRION INC.-2019CA024019

PATIENT

DRUGS (60)
  1. INFLECTRA [Suspect]
     Active Substance: INFLIXIMAB-DYYB
     Indication: Crohn^s disease
     Dosage: 5 MG/KG, AT 0, 2, 6 WEEKS, THEN EVERY 8 WEEKS
     Route: 042
     Dates: start: 20190515, end: 20190625
  2. INFLECTRA [Suspect]
     Active Substance: INFLIXIMAB-DYYB
     Dosage: 5 MG/KG, AT 0, 2, 6 WEEKS, THEN EVERY 8 WEEKS
     Route: 042
     Dates: start: 20190530
  3. INFLECTRA [Suspect]
     Active Substance: INFLIXIMAB-DYYB
     Dosage: 5 MG/KG, AT 0, 2, 6 WEEKS, THEN EVERY 8 WEEKS
     Route: 042
     Dates: start: 20190625
  4. INFLECTRA [Suspect]
     Active Substance: INFLIXIMAB-DYYB
     Dosage: 5 MG/KG STAT DOSE, THEN EVERY 4 WEEKS
     Route: 042
     Dates: start: 20190821
  5. INFLECTRA [Suspect]
     Active Substance: INFLIXIMAB-DYYB
     Dosage: 5 MG/KG STAT DOSE, THEN EVERY 4 WEEKS
     Route: 042
     Dates: start: 20190918
  6. INFLECTRA [Suspect]
     Active Substance: INFLIXIMAB-DYYB
     Dosage: 5 MG/KG STAT DOSE, THEN EVERY 4 WEEKS
     Route: 042
     Dates: start: 20191211
  7. INFLECTRA [Suspect]
     Active Substance: INFLIXIMAB-DYYB
     Dosage: 5 MG/KG STAT DOSE, THEN EVERY 4 WEEKS
     Route: 042
     Dates: start: 20191211
  8. INFLECTRA [Suspect]
     Active Substance: INFLIXIMAB-DYYB
     Dosage: 5 MG/KG START DOSE, THEN EVERY 4 WEEKS
     Route: 042
     Dates: start: 20200304
  9. INFLECTRA [Suspect]
     Active Substance: INFLIXIMAB-DYYB
     Dosage: 5 MG/KG START DOSE, THEN EVERY 4 WEEKS
     Route: 042
     Dates: start: 20200401
  10. INFLECTRA [Suspect]
     Active Substance: INFLIXIMAB-DYYB
     Dosage: 5 MG/KG STAT DOSE, THEN EVERY 4 WEEKS
     Route: 042
     Dates: start: 20200429
  11. INFLECTRA [Suspect]
     Active Substance: INFLIXIMAB-DYYB
     Dosage: 5 MG/KG STAT DOSE, THEN EVERY 4 WEEKS
     Route: 042
     Dates: start: 20200527
  12. INFLECTRA [Suspect]
     Active Substance: INFLIXIMAB-DYYB
     Dosage: 5 MG/KG STAT DOSE, THEN EVERY 4 WEEKS
     Route: 042
     Dates: start: 20200624
  13. INFLECTRA [Suspect]
     Active Substance: INFLIXIMAB-DYYB
     Dosage: 5 MG/KG STAT DOSE, THEN EVERY 4 WEEKS
     Route: 042
     Dates: start: 20200722
  14. INFLECTRA [Suspect]
     Active Substance: INFLIXIMAB-DYYB
     Dosage: 5 MG/KG STAT DOSE, THEN EVERY 4 WEEKS
     Route: 042
     Dates: start: 20200819
  15. INFLECTRA [Suspect]
     Active Substance: INFLIXIMAB-DYYB
     Dosage: 5 MG/KG STAT DOSE, THEN EVERY 4 WEEKS
     Route: 042
     Dates: start: 20200916
  16. INFLECTRA [Suspect]
     Active Substance: INFLIXIMAB-DYYB
     Dosage: 5 MG/KG STAT DOSE, THEN EVERY 4 WEEKS
     Route: 042
     Dates: start: 20201014
  17. INFLECTRA [Suspect]
     Active Substance: INFLIXIMAB-DYYB
     Dosage: 5 MG/KG STAT DOSE, THEN EVERY 4 WEEKS
     Route: 042
     Dates: start: 20210106
  18. INFLECTRA [Suspect]
     Active Substance: INFLIXIMAB-DYYB
     Dosage: 5 MG/KG STAT DOSE, THEN EVERY 4 WEEKS
     Route: 042
     Dates: start: 20210202
  19. INFLECTRA [Suspect]
     Active Substance: INFLIXIMAB-DYYB
     Dosage: 5 MG/KG STAT DOSE, THEN EVERY 4 WEEKS
     Route: 042
     Dates: start: 20210303
  20. INFLECTRA [Suspect]
     Active Substance: INFLIXIMAB-DYYB
     Dosage: 5 MG/KG STAT DOSE, THEN EVERY 4 WEEKS
     Route: 042
     Dates: start: 20210303
  21. INFLECTRA [Suspect]
     Active Substance: INFLIXIMAB-DYYB
     Dosage: 5 MG/KG STAT DOSE, THEN EVERY 4 WEEKS
     Route: 042
     Dates: start: 20210330
  22. INFLECTRA [Suspect]
     Active Substance: INFLIXIMAB-DYYB
     Dosage: 5 MG/KG STAT DOSE, THEN EVERY 4 WEEKS
     Route: 042
     Dates: start: 20210430
  23. INFLECTRA [Suspect]
     Active Substance: INFLIXIMAB-DYYB
     Dosage: 5 MG/KG STAT DOSE, THEN EVERY 4 WEEKS
     Route: 042
     Dates: start: 20210528
  24. INFLECTRA [Suspect]
     Active Substance: INFLIXIMAB-DYYB
     Dosage: 5 MG/KG STAT DOSE, THEN EVERY 4 WEEKS
     Route: 042
     Dates: start: 20210625
  25. INFLECTRA [Suspect]
     Active Substance: INFLIXIMAB-DYYB
     Dosage: 5 MG/KG STAT DOSE, THEN EVERY 4 WEEKS
     Route: 042
     Dates: start: 20210723
  26. INFLECTRA [Suspect]
     Active Substance: INFLIXIMAB-DYYB
     Dosage: 5 MG/KG STAT DOSE, THEN EVERY 4 WEEKS
     Route: 042
     Dates: start: 20210827
  27. INFLECTRA [Suspect]
     Active Substance: INFLIXIMAB-DYYB
     Dosage: 5 MG/KG STAT DOSE, THEN EVERY 4 WEEKS
     Route: 042
     Dates: start: 20210928
  28. INFLECTRA [Suspect]
     Active Substance: INFLIXIMAB-DYYB
     Dosage: 5 MG/KG STAT DOSE, THEN EVERY 4 WEEKS
     Route: 042
     Dates: start: 20211029
  29. INFLECTRA [Suspect]
     Active Substance: INFLIXIMAB-DYYB
     Dosage: 5 MG/KG STAT DOSE, THEN EVERY 4 WEEKS
     Route: 042
     Dates: start: 20211126
  30. INFLECTRA [Suspect]
     Active Substance: INFLIXIMAB-DYYB
     Dosage: 5 MG/KG STAT DOSE, THEN EVERY 4 WEEKS
     Route: 042
     Dates: start: 20211221
  31. INFLECTRA [Suspect]
     Active Substance: INFLIXIMAB-DYYB
     Dosage: 5 MG/KG STAT DOSE, THEN EVERY 4 WEEKS
     Route: 042
     Dates: start: 20220121
  32. INFLECTRA [Suspect]
     Active Substance: INFLIXIMAB-DYYB
     Dosage: 5 MG/KG STAT DOSE, THEN EVERY 4 WEEKS
     Route: 042
     Dates: start: 20220223
  33. INFLECTRA [Suspect]
     Active Substance: INFLIXIMAB-DYYB
     Dosage: 5 MG/KG STAT DOSE, THEN EVERY 4 WEEKS
     Route: 042
     Dates: start: 20220322
  34. INFLECTRA [Suspect]
     Active Substance: INFLIXIMAB-DYYB
     Dosage: 5 MG/KG STAT DOSE, THEN EVERY 4 WEEKS
     Route: 042
     Dates: start: 20220322
  35. INFLECTRA [Suspect]
     Active Substance: INFLIXIMAB-DYYB
     Dosage: 5 MG/KG STAT DOSE, THEN EVERY 4 WEEKS
     Route: 042
     Dates: start: 20220420
  36. INFLECTRA [Suspect]
     Active Substance: INFLIXIMAB-DYYB
     Dosage: 5 MG/KG STAT DOSE, THEN EVERY 4 WEEKS
     Route: 042
     Dates: start: 20220518
  37. INFLECTRA [Suspect]
     Active Substance: INFLIXIMAB-DYYB
     Dosage: 5 MG/KG STAT DOSE THEN EVERY 4 WEEKS
     Route: 042
     Dates: start: 20220722
  38. INFLECTRA [Suspect]
     Active Substance: INFLIXIMAB-DYYB
     Dosage: 5 MG/KG STAT DOSE THEN EVERY 4 WEEKS
     Route: 042
     Dates: start: 20220817
  39. INFLECTRA [Suspect]
     Active Substance: INFLIXIMAB-DYYB
     Dosage: 5 MG/KG STAT DOSE THEN EVERY 4 WEEKS
     Route: 042
     Dates: start: 20221014
  40. INFLECTRA [Suspect]
     Active Substance: INFLIXIMAB-DYYB
     Dosage: 5 MG/KG STAT DOSE THEN EVERY 4 WEEKS
     Route: 042
     Dates: start: 20221202
  41. DIPHENHYDRAMINE [Concomitant]
     Active Substance: DIPHENHYDRAMINE
     Indication: Premedication
     Dosage: 50 MG
     Dates: start: 20190918, end: 20190918
  42. DIPHENHYDRAMINE [Concomitant]
     Active Substance: DIPHENHYDRAMINE
     Dosage: 50 MG
     Route: 048
     Dates: start: 20200624, end: 20200624
  43. DIPHENHYDRAMINE [Concomitant]
     Active Substance: DIPHENHYDRAMINE
     Dosage: 50 MG
     Dates: start: 20200819, end: 20200819
  44. DIPHENHYDRAMINE [Concomitant]
     Active Substance: DIPHENHYDRAMINE
     Dosage: 50 MG
     Route: 048
     Dates: start: 20200916, end: 20200916
  45. DIPHENHYDRAMINE [Concomitant]
     Active Substance: DIPHENHYDRAMINE
     Dosage: 50 MG
     Route: 048
     Dates: start: 20201014, end: 20201014
  46. DIPHENHYDRAMINE [Concomitant]
     Active Substance: DIPHENHYDRAMINE
     Dosage: UNK
     Dates: start: 20210625, end: 20210625
  47. ENTOCORT [Concomitant]
     Active Substance: BUDESONIDE
     Dosage: 6 MG
     Route: 048
  48. HYDROCORTISONE [Concomitant]
     Active Substance: HYDROCORTISONE
     Indication: Premedication
     Dosage: 100 MG
     Dates: start: 20190918, end: 20190918
  49. HYDROCORTISONE [Concomitant]
     Active Substance: HYDROCORTISONE
     Dosage: 100 MG
     Route: 042
     Dates: start: 20200624, end: 20200624
  50. HYDROCORTISONE [Concomitant]
     Active Substance: HYDROCORTISONE
     Dosage: 100 MG
     Dates: start: 20200819, end: 20200819
  51. HYDROCORTISONE [Concomitant]
     Active Substance: HYDROCORTISONE
     Dosage: 100 MG
     Route: 042
     Dates: start: 20200916, end: 20200916
  52. HYDROCORTISONE [Concomitant]
     Active Substance: HYDROCORTISONE
     Dosage: 100 MG
     Route: 042
     Dates: start: 20201014, end: 20201014
  53. HYDROCORTISONE [Concomitant]
     Active Substance: HYDROCORTISONE
     Dosage: UNK
     Dates: start: 20210625, end: 20210625
  54. PREDNISONE [Concomitant]
     Active Substance: PREDNISONE
     Dosage: 5 MG, DAILY
     Route: 048
  55. PREDNISONE [Concomitant]
     Active Substance: PREDNISONE
     Dosage: 35 MG, DAILY
     Route: 048
  56. PREDNISONE [Concomitant]
     Active Substance: PREDNISONE
     Dosage: 5 MG (FOR 4 WEEKS, THEN FOLLOW UP WITH MD)
  57. SYNTHROID [Concomitant]
     Active Substance: LEVOTHYROXINE SODIUM
     Dosage: 0.075 UG, 1X/DAY
     Route: 048
  58. SYNTHROID [Concomitant]
     Active Substance: LEVOTHYROXINE SODIUM
     Dosage: 0.075 MG, 1X/DAY (1 DF)
     Route: 048
  59. SYNTHROID [Concomitant]
     Active Substance: LEVOTHYROXINE SODIUM
     Dosage: 1 DF DOSE - 0.075 MG
     Route: 048
  60. VITAMIN D3 [Concomitant]
     Active Substance: CHOLECALCIFEROL
     Dosage: 2000 MG
     Route: 048

REACTIONS (24)
  - Endometriosis [Unknown]
  - Hypotension [Unknown]
  - Sleep disorder [Not Recovered/Not Resolved]
  - Condition aggravated [Not Recovered/Not Resolved]
  - Body temperature decreased [Recovered/Resolved]
  - Heart rate decreased [Unknown]
  - Heart rate irregular [Unknown]
  - Heart rate increased [Unknown]
  - Infusion site pain [Unknown]
  - Menstrual disorder [Unknown]
  - Heavy menstrual bleeding [Unknown]
  - Concussion [Recovering/Resolving]
  - Weight decreased [Unknown]
  - Feeding disorder [Unknown]
  - Nausea [Not Recovered/Not Resolved]
  - Vomiting [Not Recovered/Not Resolved]
  - Head injury [Unknown]
  - Anxiety [Not Recovered/Not Resolved]
  - COVID-19 [Recovering/Resolving]
  - Off label use [Unknown]
  - Intentional dose omission [Unknown]
  - Intentional product use issue [Unknown]
  - Off label use [Unknown]
  - Inappropriate schedule of product administration [Unknown]

NARRATIVE: CASE EVENT DATE: 20190821
